FAERS Safety Report 8992319 (Version 1)
Quarter: 2012Q4

REPORT INFORMATION
  Report Type: 
  Country: SE (occurrence: SE)
  Receive Date: 20121231
  Receipt Date: 20121231
  Transmission Date: 20130627
  Serious: Yes (Other)
  Sender: FDA-Public Use
  Company Number: SE-ABBOTT-12P-150-1027144-00

PATIENT
  Age: 68 Year
  Sex: Male

DRUGS (1)
  1. ENANTONE [Suspect]
     Indication: PROSTATE CANCER
     Dates: start: 20110912

REACTIONS (3)
  - Prostatic specific antigen increased [Unknown]
  - Drug ineffective [Unknown]
  - Blood testosterone increased [Unknown]
